FAERS Safety Report 7669697-7 (Version None)
Quarter: 2011Q3

REPORT INFORMATION
  Report Type: 
  Country: None (occurrence: None)
  Receive Date: 20110808
  Receipt Date: 20110728
  Transmission Date: 20111222
  Serious: Yes (Disabling)
  Sender: FDA-Public Use
  Company Number: FR-ASTRAZENECA-2011SE45274

PATIENT
  Sex: Male

DRUGS (1)
  1. XYLOCAINE VISCOUS [Suspect]
     Indication: ANAESTHESIA
     Route: 047

REACTIONS (2)
  - INCORRECT ROUTE OF DRUG ADMINISTRATION [None]
  - ENDOPHTHALMITIS [None]
